FAERS Safety Report 12604366 (Version 6)
Quarter: 2016Q3

REPORT INFORMATION
  Report Type: Report from Study
  Country: BR (occurrence: BR)
  Receive Date: 20160728
  Receipt Date: 20160922
  Transmission Date: 20161109
  Serious: Yes (Death, Life-Threatening, Hospitalization, Other)
  Sender: FDA-Public Use
  Company Number: PHHY2016BR103636

PATIENT
  Age: 83 Year
  Sex: Male
  Weight: 61 kg

DRUGS (5)
  1. PLASIL [Concomitant]
     Active Substance: METOCLOPRAMIDE HYDROCHLORIDE
     Indication: NAUSEA
     Dosage: UNK UNK, Q6H
     Route: 065
  2. EXJADE [Suspect]
     Active Substance: DEFERASIROX
     Indication: IRON OVERLOAD
     Dosage: 2 DF OF 500 MG (1000 MG) (15 MG/KG), QD
     Route: 048
  3. ACOLIC [Concomitant]
     Indication: ANAEMIA
     Dosage: 1 DF, QD
     Route: 065
  4. EXJADE [Suspect]
     Active Substance: DEFERASIROX
     Indication: PAROXYSMAL NOCTURNAL HAEMOGLOBINURIA
     Dosage: 2 DF OF 500 MG (15 MG/KG), QD
     Route: 048
     Dates: start: 201603
  5. EXJADE [Suspect]
     Active Substance: DEFERASIROX
     Indication: ANAEMIA
     Dosage: 4 DF OF 500 MG (30 MG/KG), QD
     Route: 048

REACTIONS (19)
  - Urinary tract infection bacterial [Fatal]
  - Pyrexia [Not Recovered/Not Resolved]
  - Urinary tract disorder [Fatal]
  - Paroxysmal nocturnal haemoglobinuria [Fatal]
  - Malaise [Unknown]
  - Decreased appetite [Unknown]
  - Nosocomial infection [Fatal]
  - Chromaturia [Recovering/Resolving]
  - Weight decreased [Not Recovered/Not Resolved]
  - Blood iron increased [Unknown]
  - Hypophagia [Unknown]
  - Sepsis [Fatal]
  - Haemoglobin decreased [Recovering/Resolving]
  - Gastrointestinal infection [Recovered/Resolved]
  - Hypertension [Recovering/Resolving]
  - Renal failure [Fatal]
  - Dysgeusia [Unknown]
  - Serum ferritin increased [Recovering/Resolving]
  - Asthenia [Unknown]

NARRATIVE: CASE EVENT DATE: 201603
